FAERS Safety Report 24169350 (Version 1)
Quarter: 2024Q3

REPORT INFORMATION
  Report Type: Spontaneous
  Country: AU (occurrence: AU)
  Receive Date: 20240802
  Receipt Date: 20240802
  Transmission Date: 20241016
  Serious: Yes (Hospitalization)
  Sender: ANI
  Company Number: AU-ANIPHARMA-2024-AU-000318

PATIENT
  Sex: 0

DRUGS (5)
  1. CANDESARTAN [Suspect]
     Active Substance: CANDESARTAN
     Indication: Product used for unknown indication
  2. BISOPROLOL FUMARATE [Suspect]
     Active Substance: BISOPROLOL FUMARATE
  3. SERETIDE [Suspect]
     Active Substance: FLUTICASONE PROPIONATE\SALMETEROL XINAFOATE
  4. CLOPIDOGREL [Suspect]
     Active Substance: CLOPIDOGREL BISULFATE
  5. FENOFIBRATE [Suspect]
     Active Substance: FENOFIBRATE

REACTIONS (5)
  - Cataract [Unknown]
  - Cardiac failure [Unknown]
  - Deafness [Unknown]
  - Contusion [Unknown]
  - Therapeutic response unexpected [Unknown]
